FAERS Safety Report 5842405-8 (Version None)
Quarter: 2008Q3

REPORT INFORMATION
  Report Type: 
  Country: None (occurrence: None)
  Receive Date: 20080812
  Receipt Date: 20080807
  Transmission Date: 20090109
  Serious: Yes (Other)
  Sender: FDA-Public Use
  Company Number: US-ASTRAZENECA-2008UW15035

PATIENT
  Age: 79 Year
  Sex: Male

DRUGS (12)
  1. CRESTOR [Suspect]
     Route: 048
     Dates: start: 20040101, end: 20060101
  2. CRESTOR [Suspect]
     Route: 048
     Dates: start: 20060101, end: 20080803
  3. PLAVIX [Concomitant]
  4. PAXIL [Concomitant]
  5. FORTEO [Concomitant]
     Indication: BACK PAIN
     Dosage: BEGAN TAKING IT A LITTLE OVER 4 MONTHS AGO
     Dates: start: 20080401
  6. TRICOR [Concomitant]
     Dates: end: 20080201
  7. ATENOLOL [Concomitant]
  8. ISOSORBIDE MONONITRATE [Concomitant]
  9. CLARINEX [Concomitant]
  10. CINNAMON [Concomitant]
  11. FISH OIL [Concomitant]
  12. MULTI-VITAMIN [Concomitant]

REACTIONS (3)
  - FATIGUE [None]
  - MUSCLE SPASMS [None]
  - MYOCARDIAL INFARCTION [None]
